FAERS Safety Report 24152000 (Version 4)
Quarter: 2025Q1

REPORT INFORMATION
  Report Type: Spontaneous
  Country: US (occurrence: US)
  Receive Date: 20240730
  Receipt Date: 20250227
  Transmission Date: 20250409
  Serious: Yes (Other)
  Sender: BRISTOL-MYERS SQUIBB COMPANY
  Company Number: US-BRISTOL-MYERS SQUIBB COMPANY-2024-115569

PATIENT
  Age: 73 Year
  Sex: Male
  Weight: 63.3 kg

DRUGS (17)
  1. KENALOG [Suspect]
     Active Substance: TRIAMCINOLONE ACETONIDE
     Indication: Product used for unknown indication
     Dates: start: 20240119
  2. OLAPARIB [Suspect]
     Active Substance: OLAPARIB
     Indication: Adenocarcinoma
     Dosage: BID
     Route: 048
     Dates: start: 20230928, end: 20231023
  3. OLAPARIB [Suspect]
     Active Substance: OLAPARIB
     Dosage: UNKNOWN
     Route: 048
     Dates: start: 20240202, end: 20240218
  4. OLAPARIB [Suspect]
     Active Substance: OLAPARIB
     Dosage: BID
     Route: 048
     Dates: start: 20240219, end: 20240314
  5. OLAPARIB [Suspect]
     Active Substance: OLAPARIB
     Dosage: BID
     Route: 048
     Dates: start: 20240315, end: 20240412
  6. OLAPARIB [Suspect]
     Active Substance: OLAPARIB
     Dosage: BID
     Route: 048
     Dates: start: 20240412, end: 20240425
  7. FLOMAX [Concomitant]
     Active Substance: TAMSULOSIN HYDROCHLORIDE
     Indication: Benign prostatic hyperplasia
     Dates: start: 20230825
  8. FLOMAX [Concomitant]
     Active Substance: TAMSULOSIN HYDROCHLORIDE
     Indication: Urinary retention
  9. IBUPROFEN [Concomitant]
     Active Substance: IBUPROFEN
     Indication: Musculoskeletal chest pain
     Dates: start: 20240119
  10. PREDNISONE [Concomitant]
     Active Substance: PREDNISONE
     Indication: Dermatitis acneiform
     Dates: start: 20240223
  11. ELIGARD [Concomitant]
     Active Substance: LEUPROLIDE ACETATE
     Indication: Product used for unknown indication
     Dates: start: 202001
  12. LIPITOR [Concomitant]
     Active Substance: ATORVASTATIN CALCIUM
     Indication: Hyperlipidaemia
     Dates: start: 20230825
  13. LISINOPRIL [Concomitant]
     Active Substance: LISINOPRIL
     Indication: Essential hypertension
     Dates: start: 20230825
  14. ACETAMINOPHEN [Concomitant]
     Active Substance: ACETAMINOPHEN
     Indication: Product used for unknown indication
     Dates: start: 20231013
  15. TEMOVATE [Concomitant]
     Active Substance: CLOBETASOL PROPIONATE
     Indication: Dermatitis acneiform
     Dates: start: 20231110
  16. OXYCODONE [Concomitant]
     Active Substance: OXYCODONE
     Indication: Musculoskeletal chest pain
     Dates: start: 20240119
  17. OXYCODONE [Concomitant]
     Active Substance: OXYCODONE
     Indication: Bone pain

REACTIONS (1)
  - Deep vein thrombosis [Not Recovered/Not Resolved]

NARRATIVE: CASE EVENT DATE: 20240405
